FAERS Safety Report 4960488-4 (Version None)
Quarter: 2006Q2

REPORT INFORMATION
  Report Type: 
  Country: None (occurrence: None)
  Receive Date: 20060403
  Receipt Date: 20060324
  Transmission Date: 20061013
  Serious: Yes (Life-Threatening, Hospitalization)
  Sender: FDA-Public Use
  Company Number: CH-JNJFOC-20060306346

PATIENT
  Age: 79 Year
  Sex: Female

DRUGS (5)
  1. HALDOL [Suspect]
     Route: 030
  2. HALDOL [Suspect]
     Route: 048
  3. ENTUMIN [Concomitant]
     Dosage: ON RETIRING
     Route: 048
  4. KEMADRIN [Concomitant]
     Route: 048
  5. KEMADRIN [Concomitant]
     Indication: EXTRAPYRAMIDAL DISORDER
     Route: 048

REACTIONS (9)
  - ATRIAL FIBRILLATION [None]
  - CARDIAC ARREST [None]
  - DYSENTERY [None]
  - ELECTROCARDIOGRAM QT PROLONGED [None]
  - ELECTROLYTE IMBALANCE [None]
  - EXTRAPYRAMIDAL DISORDER [None]
  - HYPOKALAEMIA [None]
  - MOVEMENT DISORDER [None]
  - TORSADE DE POINTES [None]
